FAERS Safety Report 12263412 (Version 5)
Quarter: 2016Q2

REPORT INFORMATION
  Report Type: Spontaneous
  Country: US (occurrence: US)
  Receive Date: 20160413
  Receipt Date: 20160606
  Transmission Date: 20160815
  Serious: Yes (Hospitalization, Other)
  Sender: FDA-Public Use
  Company Number: US-MDT-ADR-2016-00663

PATIENT
  Age: 63 Year
  Sex: Male

DRUGS (4)
  1. BUPIVACAINE. [Suspect]
     Active Substance: BUPIVACAINE
     Dosage: 30.5
     Route: 037
  2. BUPIVACAINE. [Suspect]
     Active Substance: BUPIVACAINE
     Dosage: 29.5MG/DAY
     Route: 037
  3. BACLOFEN. [Suspect]
     Active Substance: BACLOFEN
     Dosage: 95
     Route: 037
  4. BACLOFEN. [Suspect]
     Active Substance: BACLOFEN
     Dosage: 92.22MCG/DAY
     Route: 037

REACTIONS (14)
  - No therapeutic response [Unknown]
  - Nerve injury [Unknown]
  - Urinary retention [Unknown]
  - Sciatic nerve injury [Unknown]
  - Hypoaesthesia [Unknown]
  - Micturition urgency [Unknown]
  - Nerve compression [Unknown]
  - Spinal cord injury sacral [Unknown]
  - Bladder dysfunction [Unknown]
  - Cystitis interstitial [Unknown]
  - Paraesthesia [Unknown]
  - Medical device site pain [Unknown]
  - Fractured coccyx [Unknown]
  - Pollakiuria [Unknown]

NARRATIVE: CASE EVENT DATE: 20160118
